FAERS Safety Report 4872749-8 (Version None)
Quarter: 2006Q1

REPORT INFORMATION
  Report Type: 
  Country: None (occurrence: None)
  Receive Date: 20060103
  Receipt Date: 20051221
  Transmission Date: 20060701
  Serious: Yes (Disabling, Other)
  Sender: FDA-Public Use
  Company Number: US200512002029

PATIENT
  Age: 84 Year
  Sex: Female

DRUGS (13)
  1. FORTEO [Suspect]
     Indication: OSTEOPOROSIS
     Dates: start: 20050901
  2. FORTEO PNE (250MCG/ML) (FORTEO PEN 250MCG/ML (3ML)) PEN, DISPOSABLE [Concomitant]
  3. OMEPRAZOLE [Concomitant]
  4. ESTORGENS CONJUGATED (ESTROGENS CONJUGATED) [Concomitant]
  5. FLUOXETINE HYDROCHLORIDE (FLUOXETINE HYDROCHLORIDE UNKNOWN FORMULATION [Concomitant]
  6. THYROID TAB [Concomitant]
  7. REGLAN       /USA(METOCLOPRAMIDE HYDROCHLORIDE) [Concomitant]
  8. TOPROL-XL [Concomitant]
  9. OXYCODONE (OXYCODONE) [Concomitant]
  10. POTASSIUM CHLORIDE (POTASSIUM CHLORIDE UNKNOWN FORMULATION) [Concomitant]
  11. WARFARIN SODIUM [Concomitant]
  12. BUMEX [Concomitant]
  13. ZOMAX (ZOMEPIRAC SODIUM) [Concomitant]

REACTIONS (5)
  - ABASIA [None]
  - ACTIVITIES OF DAILY LIVING IMPAIRED [None]
  - DYSSTASIA [None]
  - IMPAIRED SELF-CARE [None]
  - MOBILITY DECREASED [None]
